FAERS Safety Report 8951701 (Version 1)
Quarter: 2012Q4

REPORT INFORMATION
  Report Type: Report from Study
  Country: FR (occurrence: FR)
  Receive Date: 20121204
  Receipt Date: 20121204
  Transmission Date: 20130627
  Serious: Yes (Hospitalization)
  Sender: FDA-Public Use
  Company Number: FR-BRISTOL-MYERS SQUIBB COMPANY-16533887

PATIENT
  Age: 52 Year
  Sex: Male

DRUGS (13)
  1. ABATACEPT [Suspect]
     Indication: RHEUMATOID ARTHRITIS
     Dosage: 25mg/week,10mg/week
     Route: 058
     Dates: start: 20111028, end: 20120411
  2. METHOTREXATE [Suspect]
     Indication: RHEUMATOID ARTHRITIS
     Route: 048
     Dates: start: 20111028, end: 20120411
  3. PLACEBO [Suspect]
     Indication: RHEUMATOID ARTHRITIS
     Dosage: Abatacept:SC 125mg/wk 28Oct11-11Apr12
Methotrexate:10mg/wk PO 28Oct11-11Apr12
     Dates: start: 20111028, end: 20120411
  4. SPECIAFOLDINE [Concomitant]
     Dates: start: 20111028, end: 20120410
  5. RIMIFON [Concomitant]
     Dates: start: 20111003, end: 20120628
  6. CELEBREX [Concomitant]
     Dates: start: 20120105
  7. TRAMADOL [Concomitant]
     Indication: RHEUMATOID ARTHRITIS
     Dates: start: 20110830
  8. ISONIAZID [Concomitant]
     Indication: RHEUMATOID ARTHRITIS
     Dates: start: 20111003
  9. BROMAZEPAM [Concomitant]
  10. CHLORHEXIDINE [Concomitant]
     Dates: start: 20111028
  11. OMEPRAZOLE [Concomitant]
     Dates: start: 20120120
  12. CELECOXIB [Concomitant]
     Indication: RHEUMATOID ARTHRITIS
     Dates: start: 20120105
  13. ACETAMINOPHEN [Concomitant]
     Indication: RHEUMATOID ARTHRITIS

REACTIONS (7)
  - Myocarditis post infection [Recovered/Resolved]
  - Diplopia [None]
  - Vertigo [None]
  - Neck pain [None]
  - Cryptococcosis [None]
  - Thrombocytopenia [None]
  - Multi-organ failure [None]
